FAERS Safety Report 4446880-5 (Version None)
Quarter: 2004Q3

REPORT INFORMATION
  Report Type: 
  Country: None (occurrence: None)
  Receive Date: 20040908
  Receipt Date: 20040826
  Transmission Date: 20050211
  Serious: Yes (Life-Threatening, Hospitalization, Other)
  Sender: FDA-Public Use
  Company Number: 2004035759

PATIENT
  Age: 56 Year
  Sex: Male
  Weight: 60.1 kg

DRUGS (1)
  1. VIAGRA [Suspect]
     Indication: ERECTILE DYSFUNCTION
     Dosage: 50 MG (AS NECESSARY), ORAL
     Route: 048
     Dates: start: 20040407, end: 20040401

REACTIONS (8)
  - ACUTE MYOCARDIAL INFARCTION [None]
  - ALANINE AMINOTRANSFERASE INCREASED [None]
  - ASPARTATE AMINOTRANSFERASE INCREASED [None]
  - BLOOD LACTATE DEHYDROGENASE INCREASED [None]
  - CARDIAC ARREST [None]
  - CARDIAC FAILURE [None]
  - CORONARY ARTERY STENOSIS [None]
  - WHITE BLOOD CELL COUNT INCREASED [None]
